FAERS Safety Report 8249993-5 (Version None)
Quarter: 2012Q2

REPORT INFORMATION
  Report Type: 
  Country: None (occurrence: None)
  Receive Date: 20120402
  Receipt Date: 20120323
  Transmission Date: 20120825
  Serious: Yes (Hospitalization)
  Sender: FDA-Public Use
  Company Number: US-UCBSA-053457

PATIENT
  Sex: Male

DRUGS (5)
  1. IRON TAB [Concomitant]
  2. VITAMIN D [Concomitant]
  3. FOLIC ACID [Concomitant]
  4. CIMZIA [Suspect]
     Indication: CROHN'S DISEASE
     Route: 058
     Dates: start: 20110801
  5. LORTAB [Concomitant]

REACTIONS (4)
  - ANAL ABSCESS [None]
  - CROHN'S DISEASE [None]
  - DEHYDRATION [None]
  - SMALL INTESTINAL OBSTRUCTION [None]
